FAERS Safety Report 9907967 (Version 1)
Quarter: 2014Q1

REPORT INFORMATION
  Report Type: Report from Study
  Country: DE (occurrence: DE)
  Receive Date: 20140219
  Receipt Date: 20140219
  Transmission Date: 20141002
  Serious: Yes (Hospitalization)
  Sender: FDA-Public Use
  Company Number: DE-ROCHE-1347956

PATIENT
  Age: 46 Year
  Sex: Female

DRUGS (11)
  1. TOCILIZUMAB [Suspect]
     Indication: RHEUMATOID ARTHRITIS
     Route: 065
     Dates: start: 201008
  2. TOCILIZUMAB [Suspect]
     Route: 065
     Dates: start: 20110330
  3. TOCILIZUMAB [Suspect]
     Route: 065
     Dates: start: 20111021
  4. TOCILIZUMAB [Suspect]
     Route: 065
     Dates: start: 20120420
  5. TOCILIZUMAB [Suspect]
     Route: 065
     Dates: start: 20121122
  6. TOCILIZUMAB [Suspect]
     Route: 065
     Dates: start: 20130503, end: 20130503
  7. ABATACEPT [Concomitant]
     Route: 065
     Dates: start: 200802, end: 201006
  8. ABATACEPT [Concomitant]
     Route: 065
     Dates: start: 20081020
  9. ABATACEPT [Concomitant]
     Route: 065
     Dates: start: 20090416
  10. ABATACEPT [Concomitant]
     Route: 065
     Dates: start: 20091005
  11. ABATACEPT [Concomitant]
     Route: 065
     Dates: start: 20100419, end: 201006

REACTIONS (1)
  - Arterial occlusive disease [Unknown]
